FAERS Safety Report 20443073 (Version 1)
Quarter: 2022Q1

REPORT INFORMATION
  Report Type: Spontaneous
  Country: US (occurrence: None)
  Receive Date: 20220207
  Receipt Date: 20220207
  Transmission Date: 20220424
  Serious: Yes (Hospitalization)
  Sender: FDA-Public Use
  Company Number: None

PATIENT
  Age: 65 Year
  Sex: Female

DRUGS (16)
  1. PAXLOVID [Suspect]
     Active Substance: NIRMATRELVIR\RITONAVIR
     Indication: COVID-19
     Dosage: FREQUENCY : TWICE A DAY;?
     Route: 048
     Dates: start: 20220125, end: 20220130
  2. Albuterol 108 (90 Base) mcg/act inhaler [Concomitant]
  3. Amlodipine (Norvasc) 10 mg PO daily [Concomitant]
  4. Atorvastatin (Lipitor) 10 mg PO daily [Concomitant]
  5. Breo Ellipta 100-25 mcg/inh inhaler [Concomitant]
  6. Cyclobenzaprine (Flexeril) 10 mg tablet BID daily PRN [not taking] [Concomitant]
     Dates: start: 20211007, end: 20211222
  7. Duloxetine (Cymbalta) 30 mg DR capsule PO HS [Concomitant]
  8. Fluticasone (Flonase allergy relief) 50 mcg/act nasal spray; 1 spray e [Concomitant]
  9. Freestyle lite test strip [Concomitant]
  10. Gabapentin (Neurontin) 300 mg; dose = 600 mg nightly [Concomitant]
  11. Hydrochlorothiazide (hydrodiuril) 50 mg tablet PO daily [Concomitant]
  12. Jardiance 10 mg PO daily [Concomitant]
  13. Metformin 500 mg tablet BID w/ meals [Concomitant]
  14. Montelukast (singular) 10 mg tablet PO nightly [Concomitant]
  15. Omeprazole (Prilosec) 20 mg DR capsule PO BID [Concomitant]
  16. Zolpidem (Ambien) 10 mg tablet PO nightly PRN [Concomitant]

REACTIONS (1)
  - Pancreatitis acute [None]

NARRATIVE: CASE EVENT DATE: 20220131
